FAERS Safety Report 15222261 (Version 1)
Quarter: 2018Q3

REPORT INFORMATION
  Report Type: Other
  Country: IT (occurrence: IT)
  Receive Date: 20180731
  Receipt Date: 20180731
  Transmission Date: 20181010
  Serious: Yes (Hospitalization)
  Sender: FDA-Public Use
  Company Number: IT-COLLEGIUM PHARMACEUTICAL, INC.-IT-2018DEP001578

PATIENT
  Age: 94 Year
  Sex: Female

DRUGS (1)
  1. TAPENTADOL HYDROCHLORIDE [Suspect]
     Active Substance: TAPENTADOL HYDROCHLORIDE
     Indication: PRODUCT USED FOR UNKNOWN INDICATION
     Dosage: 1 DF, QD
     Route: 048
     Dates: start: 20180223, end: 20180302

REACTIONS (3)
  - Bedridden [Unknown]
  - Gait disturbance [Unknown]
  - Asthenia [Unknown]

NARRATIVE: CASE EVENT DATE: 20180302
